FAERS Safety Report 16739282 (Version 1)
Quarter: 2019Q3

REPORT INFORMATION
  Report Type: Spontaneous
  Country: FR (occurrence: FR)
  Receive Date: 20190826
  Receipt Date: 20190826
  Transmission Date: 20191005
  Serious: Yes (Hospitalization)
  Sender: FDA-Public Use
  Company Number: FR-TEVA-2019-FR-1096499

PATIENT
  Age: 69 Year
  Sex: Female
  Weight: 63 kg

DRUGS (18)
  1. BICARBONATE DE SODIUM [Concomitant]
     Active Substance: SODIUM BICARBONATE
     Route: 002
  2. PRIMPERAN 10 MG, SCORED TABLET [Concomitant]
     Route: 048
  3. CYCLOPHOSPHAMIDE. [Suspect]
     Active Substance: CYCLOPHOSPHAMIDE
     Indication: DIFFUSE LARGE B-CELL LYMPHOMA
     Route: 041
     Dates: start: 20190715, end: 20190715
  4. LEDERFOLINE 25 MG, COMPRIME [Concomitant]
     Active Substance: LEUCOVORIN CALCIUM
     Route: 048
  5. BINOCRIT 3000 UI/0,3 ML, SOLUTION INJECTABLE EN SERINGUE PR?-REMPLIE [Concomitant]
     Route: 058
     Dates: start: 20190513
  6. PREDNISOLONE. [Concomitant]
     Active Substance: PREDNISOLONE
     Route: 048
     Dates: start: 20190715, end: 20190715
  7. MABTHERA [Suspect]
     Active Substance: RITUXIMAB
     Indication: DIFFUSE LARGE B-CELL LYMPHOMA
     Route: 058
     Dates: start: 20190715, end: 20190715
  8. EMEND [Concomitant]
     Active Substance: APREPITANT
     Dosage: THEN 80 MG TWO DAYS AFTER THE CURE
     Route: 048
  9. PAROEX 0.12 PERCENT, SOLUTION FOR MOUTHWASH [Concomitant]
     Route: 002
  10. ATARAX [Concomitant]
     Active Substance: HYDROXYZINE HYDROCHLORIDE
     Route: 048
  11. GRANOCYTE [Concomitant]
     Active Substance: LENOGRASTIM
     Route: 041
  12. ZELITREX 500 MG, COMPRIME ENROBE [Concomitant]
     Active Substance: VALACYCLOVIR HYDROCHLORIDE
     Route: 048
  13. DOXORUBICIN [Suspect]
     Active Substance: DOXORUBICIN
     Indication: DIFFUSE LARGE B-CELL LYMPHOMA
     Route: 041
     Dates: start: 20190715, end: 20190715
  14. PREDNISONE. [Concomitant]
     Active Substance: PREDNISONE
     Indication: DIFFUSE LARGE B-CELL LYMPHOMA
     Route: 048
     Dates: start: 20190715, end: 20190715
  15. VINCRISTINE (SULFATE DE) [Suspect]
     Active Substance: VINCRISTINE SULFATE
     Indication: DIFFUSE LARGE B-CELL LYMPHOMA
     Route: 041
     Dates: start: 20190715, end: 20190715
  16. BACTRIM [Concomitant]
     Active Substance: SULFAMETHOXAZOLE\TRIMETHOPRIM
     Route: 048
  17. TOPALGIC 50 MG HARD CAPSULE [Concomitant]
     Dosage: 50 MG
     Route: 048
  18. XANAX [Concomitant]
     Active Substance: ALPRAZOLAM
     Route: 048

REACTIONS (2)
  - Administration site erythema [Recovering/Resolving]
  - Febrile bone marrow aplasia [Recovered/Resolved]

NARRATIVE: CASE EVENT DATE: 20190722
